FAERS Safety Report 18010202 (Version 3)
Quarter: 2020Q3

REPORT INFORMATION
  Report Type: Report from Study
  Country: IT (occurrence: IT)
  Receive Date: 20200710
  Receipt Date: 20200720
  Transmission Date: 20201103
  Serious: Yes (Hospitalization)
  Sender: FDA-Public Use
  Company Number: IT-PFIZER INC-2020265537

PATIENT
  Age: 53 Year
  Sex: Female

DRUGS (5)
  1. OLANZAPINE. [Suspect]
     Active Substance: OLANZAPINE
     Dosage: 2 DF, SINGLE
     Route: 048
     Dates: start: 20200524, end: 20200524
  2. CITALOPRAM [Suspect]
     Active Substance: CITALOPRAM HYDROBROMIDE
     Dosage: 20 DF, SINGLE
     Route: 048
     Dates: start: 20200524, end: 20200524
  3. EN [Suspect]
     Active Substance: DELORAZEPAM
     Dosage: 2 DF, SINGLE
     Route: 048
     Dates: start: 20200524, end: 20200524
  4. XANAX [Suspect]
     Active Substance: ALPRAZOLAM
     Dosage: 7 DF, SINGLE
     Route: 048
     Dates: start: 20200524, end: 20200524
  5. VALIUM [Suspect]
     Active Substance: DIAZEPAM
     Indication: DEPRESSION
     Dosage: 1 DF, SINGLE
     Route: 048
     Dates: start: 20200524, end: 20200524

REACTIONS (3)
  - Poisoning [Recovered/Resolved]
  - Drug abuse [Recovered/Resolved]
  - Intentional self-injury [Recovered/Resolved]

NARRATIVE: CASE EVENT DATE: 20200524
